FAERS Safety Report 13388201 (Version 1)
Quarter: 2017Q1

REPORT INFORMATION
  Report Type: Spontaneous
  Country: US (occurrence: US)
  Receive Date: 20170330
  Receipt Date: 20170330
  Transmission Date: 20170429
  Serious: Yes (Other)
  Sender: FDA-Public Use
  Company Number: US-TEVA-749510ACC

PATIENT

DRUGS (7)
  1. BACLOFEN. [Suspect]
     Active Substance: BACLOFEN
     Route: 065
  2. AMPYRA [Suspect]
     Active Substance: DALFAMPRIDINE
     Dosage: 20 MILLIGRAM DAILY;
     Route: 048
  3. SOLUMEDOL [Concomitant]
  4. TECFIDERA [Suspect]
     Active Substance: DIMETHYL FUMARATE
     Indication: MULTIPLE SCLEROSIS
     Dosage: 240 MILLIGRAM DAILY;
     Route: 048
     Dates: start: 201304
  5. TRAMADOL. [Suspect]
     Active Substance: TRAMADOL
     Route: 065
  6. TECFIDERA [Suspect]
     Active Substance: DIMETHYL FUMARATE
     Dosage: 480 MILLIGRAM DAILY;
     Route: 048
     Dates: end: 20161020
  7. COPAXONE [Concomitant]
     Active Substance: GLATIRAMER ACETATE

REACTIONS (9)
  - Product quality issue [Unknown]
  - Muscular weakness [Unknown]
  - Neurogenic bladder [Unknown]
  - General physical health deterioration [Unknown]
  - Anti-JC virus antibody index [Unknown]
  - Sleep apnoea syndrome [Unknown]
  - Muscle spasticity [Unknown]
  - Insomnia [Unknown]
  - Fatigue [Unknown]
